FAERS Safety Report 9373652 (Version 1)
Quarter: 2013Q2

REPORT INFORMATION
  Report Type: Spontaneous
  Country: US (occurrence: US)
  Receive Date: 20130627
  Receipt Date: 20130627
  Transmission Date: 20140414
  Serious: Yes (Other)
  Sender: FDA-Public Use
  Company Number: US-TEVA-415154USA

PATIENT
  Age: 32 Year
  Sex: Female
  Weight: 66.74 kg

DRUGS (1)
  1. PARAGARD 380A [Suspect]
     Indication: CONTRACEPTION
     Route: 015
     Dates: start: 20130504, end: 20130610

REACTIONS (4)
  - Grand mal convulsion [Recovered/Resolved]
  - Respiratory arrest [Recovered/Resolved]
  - Vaginal haemorrhage [Recovered/Resolved]
  - Device expulsion [Recovered/Resolved]
